FAERS Safety Report 5536616-9 (Version None)
Quarter: 2007Q4

REPORT INFORMATION
  Report Type: 
  Country: None (occurrence: None)
  Receive Date: 20071206
  Receipt Date: 20070817
  Transmission Date: 20080405
  Serious: Yes (Other)
  Sender: FDA-Public Use
  Company Number: US-AMGEN-STX239449

PATIENT
  Sex: Female

DRUGS (3)
  1. ENBREL [Suspect]
     Indication: JUVENILE ARTHRITIS
     Route: 058
     Dates: start: 20070531
  2. METHOTREXATE [Concomitant]
  3. ZITHROMAX [Concomitant]
     Dates: start: 20070813

REACTIONS (3)
  - CONVULSION [None]
  - COUGH [None]
  - SINUS CONGESTION [None]
